FAERS Safety Report 18678364 (Version 1)
Quarter: 2020Q4

REPORT INFORMATION
  Report Type: Report from Study
  Country: None (occurrence: US)
  Receive Date: 20201230
  Receipt Date: 20201230
  Transmission Date: 20210114
  Serious: Yes (Other)
  Sender: FDA-Public Use
  Company Number: US-ABBVIE-20K-163-3709334-00

PATIENT
  Sex: Male

DRUGS (1)
  1. IMBRUVICA [Suspect]
     Active Substance: IBRUTINIB
     Indication: LYMPHOCYTIC LEUKAEMIA
     Route: 048
     Dates: start: 20200924, end: 2020

REACTIONS (4)
  - Prostatic operation [Unknown]
  - Diarrhoea [Unknown]
  - Hip arthroplasty [Unknown]
  - Constipation [Unknown]

NARRATIVE: CASE EVENT DATE: 2020
